FAERS Safety Report 7321438-9 (Version None)
Quarter: 2011Q1

REPORT INFORMATION
  Report Type: 
  Country: None (occurrence: None)
  Receive Date: 20110228
  Receipt Date: 20100426
  Transmission Date: 20110831
  Serious: Yes (Other)
  Sender: FDA-Public Use
  Company Number: US-PFIZER INC-2010053266

PATIENT
  Sex: Male
  Weight: 81.633 kg

DRUGS (6)
  1. GEODON [Suspect]
     Indication: BIPOLAR DISORDER
  2. GEODON [Suspect]
     Indication: SCHIZOPHRENIA
     Dosage: 20 MG, 2X/DAY
     Route: 048
     Dates: start: 20100423, end: 20100425
  3. ATENOLOL [Concomitant]
     Indication: HYPERTENSION
     Dosage: UNK
  4. KLONOPIN [Concomitant]
     Indication: ANXIETY
     Dosage: UNK
  5. LISINOPRIL [Concomitant]
     Indication: HYPERTENSION
     Dosage: UNK
  6. METFORMIN [Concomitant]
     Indication: DIABETES MELLITUS
     Dosage: UNK

REACTIONS (1)
  - BLOOD GLUCOSE INCREASED [None]
